FAERS Safety Report 15226289 (Version 4)
Quarter: 2018Q4

REPORT INFORMATION
  Report Type: Spontaneous
  Country: BR (occurrence: BR)
  Receive Date: 20180801
  Receipt Date: 20181116
  Transmission Date: 20190204
  Serious: Yes (Other)
  Sender: FDA-Public Use
  Company Number: BR-ABBVIE-18P-020-2436807-00

PATIENT
  Sex: Male

DRUGS (6)
  1. AMATO [Suspect]
     Active Substance: TOPIRAMATE
     Indication: PSYCHOMOTOR HYPERACTIVITY
     Dosage: START DATE: 4 YEARS AGO. TREATMENT ONGOING; DAILY DOSE: 3 TABLET
     Route: 048
  2. DEPAKOTE [Suspect]
     Active Substance: DIVALPROEX SODIUM
     Indication: AUTISM SPECTRUM DISORDER
     Dosage: AT 7 A.M., AT 3 P.M. AND 11 P.M.; DAILY DOSE: 15 CAPSULES
     Route: 048
  3. MELLERIL [Concomitant]
     Active Substance: THIORIDAZINE HYDROCHLORIDE
     Indication: SCREAMING
     Dosage: START DATE: 6 YEARS AGO; ONGOING; DAILY DOSE: 4 TABLET
     Route: 048
  4. MELLERIL [Concomitant]
     Active Substance: THIORIDAZINE HYDROCHLORIDE
     Indication: PROPHYLAXIS
  5. DEPAKOTE [Suspect]
     Active Substance: DIVALPROEX SODIUM
     Indication: EPILEPSY
     Dosage: START DATE: ABOUT 6 YEARS AGO; DAILY DOSE: 3 CAPSULES
     Route: 048
  6. DEPAKENE [Suspect]
     Active Substance: VALPROIC ACID
     Indication: PRODUCT USED FOR UNKNOWN INDICATION
     Dosage: PHYSICIAN GRADUALLY DECREASED DOSE UNTIL SHE SUSPENDED THE USE + INITIATED ANOTHER THERAPY
     Route: 065

REACTIONS (18)
  - Food interaction [Unknown]
  - Drug ineffective [Unknown]
  - Product use in unapproved indication [Unknown]
  - Product use issue [Unknown]
  - Epilepsy [Recovered/Resolved]
  - Personality disorder [Unknown]
  - Hypovitaminosis [Unknown]
  - Off label use [Unknown]
  - Hunger [Unknown]
  - Platelet count decreased [Unknown]
  - Decreased appetite [Unknown]
  - Product complaint [Unknown]
  - Depressed mood [Unknown]
  - Somnolence [Unknown]
  - Product residue present [Unknown]
  - Bladder sphincter atony [Unknown]
  - Pneumonia [Unknown]
  - Anal sphincter atony [Unknown]
